FAERS Safety Report 7206545-3 (Version None)
Quarter: 2011Q1

REPORT INFORMATION
  Report Type: 
  Country: None (occurrence: None)
  Receive Date: 20110103
  Receipt Date: 20101220
  Transmission Date: 20110831
  Serious: Yes (Other)
  Sender: FDA-Public Use
  Company Number: PHHY2010IT86774

PATIENT
  Sex: Female

DRUGS (4)
  1. RISPERDAL [Suspect]
     Dosage: 2 MG DIALY
     Route: 048
     Dates: start: 20101212
  2. CONCOR [Suspect]
     Dosage: 5 MG DOSAGE
     Dates: start: 20051214
  3. TAVOR [Concomitant]
     Dosage: UNK
     Dates: start: 20101212, end: 20101216
  4. VALSARTAN  AND HYDROCHLOROTHIAZIDE [Suspect]
     Dosage: 80 MG DAILY
     Route: 048
     Dates: start: 20051214, end: 20101214

REACTIONS (4)
  - FALL [None]
  - HYPOTENSION [None]
  - INJURY [None]
  - SYNCOPE [None]
